FAERS Safety Report 9047273 (Version 1)
Quarter: 2013Q1

REPORT INFORMATION
  Report Type: Report from Study
  Country: US (occurrence: US)
  Receive Date: 20130131
  Receipt Date: 20130131
  Transmission Date: 20140127
  Serious: No
  Sender: FDA-Public Use
  Company Number: US-ABBOTT-12P-163-0960858-00

PATIENT
  Age: 67 None
  Sex: Female
  Weight: 62.2 kg

DRUGS (9)
  1. HUMIRA [Suspect]
     Indication: CROHN^S DISEASE
     Dosage: LOADING DOSE
     Dates: start: 20120712
  2. HUMIRA [Suspect]
     Indication: COLITIS ULCERATIVE
  3. CEPHALEXIN [Suspect]
     Indication: LOCALISED INFECTION
     Dates: start: 20120709
  4. ACYCLOVIR [Concomitant]
     Indication: ANTIVIRAL PROPHYLAXIS
  5. PREDNISONE [Concomitant]
     Indication: CROHN^S DISEASE
     Dosage: 5 MG DAILY
  6. ASACOL [Concomitant]
     Indication: CROHN^S DISEASE
     Dosage: 400 MG 4 TABLETS TID
  7. ACTONEL [Concomitant]
     Indication: OSTEOPOROSIS
     Dosage: 35 MG WEEKLY
  8. REFRESH EYE DROPS [Concomitant]
     Indication: DRY EYE
     Dosage: BOTH EYES EVERY 3 HOURS
  9. REFRESH PM OINTMENT [Concomitant]
     Indication: PRODUCT USED FOR UNKNOWN INDICATION
     Dosage: AT BEDTIME BOTH EYES

REACTIONS (7)
  - Diarrhoea [Not Recovered/Not Resolved]
  - Injection site reaction [Recovering/Resolving]
  - Injection site erythema [Recovering/Resolving]
  - Injection site papule [Recovering/Resolving]
  - Injection site pruritus [Recovering/Resolving]
  - Drug ineffective [Recovering/Resolving]
  - Herpes zoster [Recovering/Resolving]
